FAERS Safety Report 5338534-8 (Version None)
Quarter: 2007Q2

REPORT INFORMATION
  Report Type: 
  Country: None (occurrence: None)
  Receive Date: 20070322
  Receipt Date: 20060413
  Transmission Date: 20071010
  Serious: Yes (Hospitalization, Other)
  Sender: FDA-Public Use
  Company Number: 200610427BCC

PATIENT
  Age: 65 Year
  Sex: Female
  Weight: 76.2043 kg

DRUGS (10)
  1. ALEVE (CAPLET) [Suspect]
     Indication: ARTHRALGIA
     Dosage: 440 MG, BID, ORAL
     Route: 048
     Dates: start: 20030101, end: 20060124
  2. ALEVE (CAPLET) [Suspect]
     Indication: ARTHRITIS
     Dosage: 440 MG, BID, ORAL
     Route: 048
     Dates: start: 20030101, end: 20060124
  3. PREVACID [Concomitant]
  4. TYLENOL EXTRA STRENGTH [Concomitant]
  5. GLUCOSAMINE [Concomitant]
  6. CENTRUM SILVER [Concomitant]
  7. CALCIUM CHLORIDE [Concomitant]
  8. TYLENOL [Concomitant]
  9. AMBIEN [Concomitant]
  10. CHONDROITIN [Concomitant]

REACTIONS (14)
  - AMNESIA [None]
  - ANAEMIA [None]
  - ASTHENIA [None]
  - DYSPNOEA [None]
  - DYSPNOEA EXERTIONAL [None]
  - FAECES DISCOLOURED [None]
  - FATIGUE [None]
  - GASTRIC ULCER [None]
  - HAEMATOCRIT DECREASED [None]
  - HAEMOGLOBIN DECREASED [None]
  - MUSCLE SPASMS [None]
  - PALLOR [None]
  - SPEECH DISORDER [None]
  - VISUAL DISTURBANCE [None]
